FAERS Safety Report 4328763-4 (Version None)
Quarter: 2004Q1

REPORT INFORMATION
  Report Type: 
  Country: None (occurrence: None)
  Receive Date: 20040331
  Receipt Date: 20040318
  Transmission Date: 20041129
  Serious: Yes (Other)
  Sender: FDA-Public Use
  Company Number: A-CH2004-05468

PATIENT
  Age: 38 Year
  Sex: Female

DRUGS (5)
  1. TRACLEER [Suspect]
     Indication: PULMONARY HYPERTENSION
     Dosage: 62.5 MG, BID, ORAL
     Route: 048
     Dates: start: 20040105
  2. WARFARIN SODIUM [Suspect]
     Indication: PULMONARY HYPERTENSION
     Dosage: 4 MG, QD; 5.5 MG QD
     Dates: start: 20031209, end: 20040123
  3. FLUOXETINE [Concomitant]
  4. SALBUTAMOL (SALBUTAMOL) [Concomitant]
  5. FLIXOTIDE    ALLEN + HANBURYS (FLUTICASONE PROPIONATE) [Concomitant]

REACTIONS (2)
  - DRUG INTERACTION [None]
  - INTERNATIONAL NORMALISED RATIO DECREASED [None]
